FAERS Safety Report 11465865 (Version 3)
Quarter: 2015Q4

REPORT INFORMATION
  Report Type: Spontaneous
  Country: JP (occurrence: JP)
  Receive Date: 20150907
  Receipt Date: 20151113
  Transmission Date: 20160304
  Serious: Yes (Death, Hospitalization, Other)
  Sender: FDA-Public Use
  Company Number: JP-SHIRE-JP201511225

PATIENT
  Age: 73 Year
  Sex: Male

DRUGS (7)
  1. FOSRENOL [Suspect]
     Active Substance: LANTHANUM CARBONATE
     Indication: HYPERPHOSPHATAEMIA
     Dosage: 250 MG, OTHER (PER DAY)
     Route: 048
     Dates: start: 20110407, end: 20150511
  2. REGPARA [Concomitant]
     Active Substance: CINACALCET HYDROCHLORIDE
     Indication: HYPERPARATHYROIDISM SECONDARY
     Dosage: 75 MG, UNKNOWN
     Route: 048
     Dates: end: 20150816
  3. MUCOSTA [Concomitant]
     Active Substance: REBAMIPIDE
     Indication: GASTRITIS PROPHYLAXIS
     Dosage: 300 MG, UNKNOWN
     Route: 048
     Dates: end: 20150816
  4. CALTAN [Concomitant]
     Active Substance: CALCIUM CARBONATE
     Indication: HYPERPHOSPHATAEMIA
     Dosage: 1000 MG, UNKNOWN
     Route: 048
     Dates: end: 20150816
  5. FOIPAN [Concomitant]
     Active Substance: CAMOSTAT MESYLATE
     Indication: PANCREATITIS ACUTE
     Dosage: 600 MG, UNKNOWN
     Route: 048
     Dates: start: 200103, end: 20150816
  6. FOSRENOL [Suspect]
     Active Substance: LANTHANUM CARBONATE
     Indication: HYPERPHOSPHATAEMIA
     Dosage: 1000 MG, UNKNOWN (PER DAY)
     Route: 048
     Dates: start: 20150512, end: 20150815
  7. GASTER [Concomitant]
     Active Substance: FAMOTIDINE
     Indication: GASTRITIS PROPHYLAXIS
     Dosage: 10 MG, UNKNOWN
     Route: 048
     Dates: end: 20150816

REACTIONS (8)
  - Atrial fibrillation [Unknown]
  - Bacterial sepsis [Fatal]
  - Depressed level of consciousness [Unknown]
  - Haematemesis [Unknown]
  - Seizure [Unknown]
  - Aortic valve stenosis [Unknown]
  - Large intestine perforation [Fatal]
  - Cerebral infarction [Unknown]

NARRATIVE: CASE EVENT DATE: 2015
